FAERS Safety Report 11335009 (Version 29)
Quarter: 2021Q1

REPORT INFORMATION
  Report Type: Other
  Country: DE (occurrence: DE)
  Receive Date: 20150804
  Receipt Date: 20210309
  Transmission Date: 20210419
  Serious: Yes (Life-Threatening, Hospitalization, Other)
  Sender: FDA-Public Use
  Company Number: DE-ROCHE-ITM201411IM007553

PATIENT
  Age: 56 Year
  Sex: Male
  Weight: 96 kg

DRUGS (23)
  1. DEKRISTOL [Concomitant]
     Active Substance: CHOLECALCIFEROL
     Dosage: IN THE MORNING.
     Route: 065
  2. XELEVIA [Concomitant]
     Active Substance: SITAGLIPTIN PHOSPHATE
     Dosage: 1?0?1
  3. PANTOPRAZOL [Concomitant]
     Active Substance: PANTOPRAZOLE SODIUM
     Route: 065
  4. ESBRIET [Suspect]
     Active Substance: PIRFENIDONE
     Indication: IDIOPATHIC PULMONARY FIBROSIS
     Dosage: FOR 14 DAYS?3?3?3
     Route: 048
     Dates: start: 20140827, end: 20140908
  5. ESBRIET [Suspect]
     Active Substance: PIRFENIDONE
     Route: 048
     Dates: start: 20140923
  6. AMLODIPIN [Concomitant]
     Active Substance: AMLODIPINE BESYLATE
     Dosage: 5 MG? 0? 0
     Route: 065
  7. RAMILICH [Concomitant]
     Active Substance: RAMIPRIL
     Dosage: 1?0?1
  8. QUILONUM RETARD [Suspect]
     Active Substance: LITHIUM CARBONATE
     Indication: PRODUCT USED FOR UNKNOWN INDICATION
     Dosage: 1?0?1
     Route: 065
  9. L?THYROXIN [Concomitant]
     Active Substance: LEVOTHYROXINE SODIUM
     Dosage: 1?0?0
     Route: 065
  10. VENLAFAXIN [Concomitant]
     Active Substance: VENLAFAXINE HYDROCHLORIDE
     Dosage: 225 MG? 0? 150 MG
     Route: 065
  11. PANTOPRAZOL [Concomitant]
     Active Substance: PANTOPRAZOLE SODIUM
     Dosage: 1?0?1
  12. TAVOR (LORAZEPAM) [Concomitant]
     Active Substance: LORAZEPAM
     Dosage: MAXIMUM FOUR TIMES PER DAY
  13. INSULIN [Concomitant]
     Active Substance: INSULIN NOS
  14. INSULIN [Concomitant]
     Active Substance: INSULIN NOS
     Dosage: LONG?ACTING
  15. DEKRISTOL [Concomitant]
     Active Substance: CHOLECALCIFEROL
     Dosage: 1?0?0
     Route: 065
  16. ESBRIET [Suspect]
     Active Substance: PIRFENIDONE
     Dosage: FOR 14 DAYS
     Route: 048
     Dates: start: 20140909, end: 20140922
  17. INSULIN [Concomitant]
     Active Substance: INSULIN NOS
     Dosage: LONG?ACTING
  18. INSULIN [Concomitant]
     Active Substance: INSULIN NOS
     Dosage: 40 IE ? 32 IE ? 12 IE ? 28 IE
     Route: 065
  19. INSULIN [Concomitant]
     Active Substance: INSULIN NOS
  20. INSULIN [Concomitant]
     Active Substance: INSULIN NOS
     Dosage: SHORT?ACTING (36 IU ? 12 IU ? 10 IU)
  21. VENLAFAXIN [Concomitant]
     Active Substance: VENLAFAXINE HYDROCHLORIDE
     Dosage: 1?1?0
  22. METOPROLOL. [Concomitant]
     Active Substance: METOPROLOL
     Dosage: 1 ? 0? 0
     Route: 065
  23. SEROQUEL [Concomitant]
     Active Substance: QUETIAPINE FUMARATE
     Dosage: 0? 0? 50 MG
     Route: 065

REACTIONS (75)
  - Cataract [Unknown]
  - Depression [Unknown]
  - Erythema [Not Recovered/Not Resolved]
  - Chest pain [Not Recovered/Not Resolved]
  - Chronic gastritis [Not Recovered/Not Resolved]
  - Phlebitis [Unknown]
  - Dementia [Not Recovered/Not Resolved]
  - Limb immobilisation [Not Recovered/Not Resolved]
  - Renal function test abnormal [Not Recovered/Not Resolved]
  - Nasopharyngitis [Recovered/Resolved]
  - Suicidal ideation [Recovered/Resolved]
  - Acute kidney injury [Recovered/Resolved]
  - Subcutaneous abscess [Recovered/Resolved]
  - Urosepsis [Recovered/Resolved]
  - Toxicity to various agents [Unknown]
  - Haematochezia [Recovered/Resolved]
  - Off label use [Unknown]
  - General physical health deterioration [Not Recovered/Not Resolved]
  - Neoplasm [Recovered/Resolved]
  - Hepatic cirrhosis [Not Recovered/Not Resolved]
  - Bladder fibrosis [Not Recovered/Not Resolved]
  - Overweight [Not Recovered/Not Resolved]
  - Mental disorder [Recovering/Resolving]
  - Gastric disorder [Recovering/Resolving]
  - Renal failure [Not Recovered/Not Resolved]
  - Peripheral swelling [Not Recovered/Not Resolved]
  - Diarrhoea [Unknown]
  - Cataract [Not Recovered/Not Resolved]
  - Abdominal pain upper [Recovering/Resolving]
  - Hepatic failure [Unknown]
  - Eyelid cyst [Not Recovered/Not Resolved]
  - Anal abscess [Recovered/Resolved]
  - Suicide attempt [Unknown]
  - Scrotal abscess [Recovering/Resolving]
  - Osteomyelitis [Recovered/Resolved]
  - Pain in extremity [Not Recovered/Not Resolved]
  - Inflammation [Unknown]
  - Thrombosis [Unknown]
  - Limb discomfort [Not Recovered/Not Resolved]
  - Ageusia [Not Recovered/Not Resolved]
  - Stress [Not Recovered/Not Resolved]
  - Gastritis [Unknown]
  - Abscess [Recovered/Resolved]
  - Ankle fracture [Not Recovered/Not Resolved]
  - Deep vein thrombosis [Recovered/Resolved with Sequelae]
  - Hepatic failure [Not Recovered/Not Resolved]
  - Gastritis [Not Recovered/Not Resolved]
  - Decreased appetite [Not Recovered/Not Resolved]
  - Asthenia [Unknown]
  - Pain of skin [Recovered/Resolved]
  - Fluid retention [Recovering/Resolving]
  - Eye haemorrhage [Not Recovered/Not Resolved]
  - Phlebitis [Not Recovered/Not Resolved]
  - Dyspnoea [Not Recovered/Not Resolved]
  - Bipolar disorder [Not Recovered/Not Resolved]
  - Extremity necrosis [Recovering/Resolving]
  - Scrotal pain [Recovered/Resolved]
  - Arthralgia [Not Recovered/Not Resolved]
  - Depression [Recovered/Resolved]
  - Ascites [Not Recovered/Not Resolved]
  - Left ventricular failure [Unknown]
  - Pain in extremity [Recovered/Resolved]
  - Blood glucose increased [Recovered/Resolved]
  - Foot fracture [Not Recovered/Not Resolved]
  - Joint swelling [Not Recovered/Not Resolved]
  - Borderline personality disorder [Recovered/Resolved]
  - Diabetic ulcer [Unknown]
  - Cardiac hypertrophy [Not Recovered/Not Resolved]
  - Wound [Unknown]
  - Intentional product use issue [Unknown]
  - Skin discolouration [Not Recovered/Not Resolved]
  - Dry skin [Not Recovered/Not Resolved]
  - Eczema [Not Recovered/Not Resolved]
  - Pyrexia [Recovered/Resolved]
  - Weight decreased [Not Recovered/Not Resolved]

NARRATIVE: CASE EVENT DATE: 20141109
